FAERS Safety Report 16476953 (Version 1)
Quarter: 2019Q2

REPORT INFORMATION
  Report Type: Spontaneous
  Country: US (occurrence: US)
  Receive Date: 20190626
  Receipt Date: 20190626
  Transmission Date: 20190711
  Serious: Yes (Other)
  Sender: FDA-Public Use
  Company Number: US-BAUSCH-BL-2019-018418

PATIENT
  Age: 49 Year
  Sex: Female

DRUGS (12)
  1. FOLINIC ACID [Suspect]
     Active Substance: LEUCOVORIN
     Indication: CENTRAL NERVOUS SYSTEM LESION
     Dosage: 9 CYCLES
     Route: 065
     Dates: start: 2007
  2. IRINOTECAN HYDROCHLORIDE. [Suspect]
     Active Substance: IRINOTECAN HYDROCHLORIDE
     Indication: CENTRAL NERVOUS SYSTEM LESION
     Dosage: 9 CYCLES
     Route: 065
     Dates: start: 2007
  3. OXALIPLATIN. [Suspect]
     Active Substance: OXALIPLATIN
     Indication: METASTASES TO CENTRAL NERVOUS SYSTEM
  4. CAPECITABINE. [Suspect]
     Active Substance: CAPECITABINE
     Indication: METASTASES TO CENTRAL NERVOUS SYSTEM
  5. FLUOROURACIL. [Suspect]
     Active Substance: FLUOROURACIL
     Indication: METASTASES TO CENTRAL NERVOUS SYSTEM
  6. FOLINIC ACID [Suspect]
     Active Substance: LEUCOVORIN
     Indication: METASTASES TO CENTRAL NERVOUS SYSTEM
  7. CAPECITABINE. [Suspect]
     Active Substance: CAPECITABINE
     Indication: CENTRAL NERVOUS SYSTEM LESION
     Dosage: 9 CYCLES
     Route: 065
     Dates: start: 2007
  8. CETUXIMAB. [Suspect]
     Active Substance: CETUXIMAB
     Indication: CENTRAL NERVOUS SYSTEM LESION
     Dosage: 9 CYCLES
     Route: 065
     Dates: start: 2007
  9. FLUOROURACIL. [Suspect]
     Active Substance: FLUOROURACIL
     Indication: CENTRAL NERVOUS SYSTEM LESION
     Dosage: 9 CYCLES
     Route: 065
     Dates: start: 2007
  10. IRINOTECAN HYDROCHLORIDE. [Suspect]
     Active Substance: IRINOTECAN HYDROCHLORIDE
     Indication: METASTASES TO CENTRAL NERVOUS SYSTEM
  11. OXALIPLATIN. [Suspect]
     Active Substance: OXALIPLATIN
     Indication: CENTRAL NERVOUS SYSTEM LESION
     Dosage: 9 CYCLES
     Route: 065
     Dates: start: 2007
  12. CETUXIMAB. [Suspect]
     Active Substance: CETUXIMAB
     Indication: METASTASES TO CENTRAL NERVOUS SYSTEM

REACTIONS (3)
  - Demyelination [Unknown]
  - Multiple sclerosis [Unknown]
  - Central nervous system lesion [Unknown]

NARRATIVE: CASE EVENT DATE: 2008
